FAERS Safety Report 18226453 (Version 2)
Quarter: 2020Q4

REPORT INFORMATION
  Report Type: Spontaneous
  Country: NO (occurrence: NO)
  Receive Date: 20200903
  Receipt Date: 20201019
  Transmission Date: 20210113
  Serious: Yes (Hospitalization)
  Sender: FDA-Public Use
  Company Number: NO-ROCHE-2670504

PATIENT
  Age: 40 Year
  Sex: Female

DRUGS (1)
  1. XOLAIR [Suspect]
     Active Substance: OMALIZUMAB
     Indication: MASTOCYTOSIS
     Route: 051

REACTIONS (13)
  - Feeling abnormal [Unknown]
  - Off label use [Unknown]
  - Nausea [Unknown]
  - Injection site reaction [Unknown]
  - Pharyngeal swelling [Unknown]
  - Dizziness [Recovered/Resolved]
  - Flushing [Unknown]
  - Dyspnoea [Unknown]
  - Abdominal pain [Recovered/Resolved]
  - Back pain [Unknown]
  - Somnolence [Unknown]
  - Chest pain [Unknown]
  - Intentional product use issue [Unknown]

NARRATIVE: CASE EVENT DATE: 20200204
